FAERS Safety Report 14724040 (Version 1)
Quarter: 2018Q2

REPORT INFORMATION
  Report Type: Spontaneous
  Country: US (occurrence: US)
  Receive Date: 20180405
  Receipt Date: 20180405
  Transmission Date: 20180711
  Serious: Yes (Death)
  Sender: FDA-Public Use
  Company Number: US-CHIESI USA INC.-US-2018CHI000072

PATIENT

DRUGS (3)
  1. CUROSURF [Suspect]
     Active Substance: PORACTANT ALFA
     Indication: OFF LABEL USE
  2. CUROSURF [Suspect]
     Active Substance: PORACTANT ALFA
     Indication: PULMONARY HAEMORRHAGE
     Dosage: 1.33 ML, SINGLE
     Route: 065
     Dates: start: 20180311, end: 20180311
  3. CUROSURF [Suspect]
     Active Substance: PORACTANT ALFA
     Indication: NEONATAL RESPIRATORY DISTRESS SYNDROME
     Dosage: 1.33 ML, SINGLE
     Route: 007
     Dates: start: 20180305, end: 20180305

REACTIONS (3)
  - Off label use [Recovered/Resolved]
  - Neutropenia [Unknown]
  - Pulmonary haemorrhage [Fatal]

NARRATIVE: CASE EVENT DATE: 201803
